FAERS Safety Report 6942326-3 (Version None)
Quarter: 2010Q3

REPORT INFORMATION
  Report Type: 
  Country: None (occurrence: None)
  Receive Date: 20100826
  Receipt Date: 20100819
  Transmission Date: 20110219
  Serious: Yes (Hospitalization, Other)
  Sender: FDA-Public Use
  Company Number: BE-BRISTOL-MYERS SQUIBB COMPANY-15233794

PATIENT
  Age: 13 Year
  Sex: Male
  Weight: 61 kg

DRUGS (11)
  1. CYCLOPHOSPHAMIDE [Suspect]
     Indication: ACUTE LYMPHOCYTIC LEUKAEMIA
     Dosage: ON DAY 1
     Route: 042
     Dates: start: 20080714
  2. VINCRISTINE SULFATE [Suspect]
     Indication: ACUTE LYMPHOCYTIC LEUKAEMIA
     Dates: end: 20080701
  3. MESNA [Suspect]
     Route: 042
     Dates: start: 20080714
  4. ADRIAMYCIN PFS [Suspect]
     Indication: ACUTE LYMPHOCYTIC LEUKAEMIA
  5. BACTRIM [Suspect]
     Route: 048
     Dates: start: 20080603
  6. ERWINASE [Suspect]
     Indication: ACUTE LYMPHOCYTIC LEUKAEMIA
     Dosage: 1 DF = 20,000 U/M2
     Dates: end: 20080620
  7. OMEPRAZOLE [Suspect]
     Route: 048
     Dates: start: 20100620
  8. THIOGUANINE [Suspect]
     Indication: ACUTE LYMPHOCYTIC LEUKAEMIA
     Dosage: DAYS 1-14
     Route: 048
     Dates: start: 20080714, end: 20080728
  9. CYTARABINE [Suspect]
     Dosage: IV CYTARABINE 75 MG/M2 ON DAYS 3-6 AND DAYS 10-13; TRIPLE INTRATHECAL THERAPY
     Route: 037
     Dates: start: 20100714
  10. METHOTREXATE [Suspect]
     Route: 037
  11. ONDANSETRON [Suspect]
     Dates: start: 20080714, end: 20080729

REACTIONS (1)
  - HEMIPARESIS [None]
